FAERS Safety Report 12921685 (Version 1)
Quarter: 2016Q4

REPORT INFORMATION
  Report Type: Spontaneous
  Country: US (occurrence: US)
  Receive Date: 20161108
  Receipt Date: 20161108
  Transmission Date: 20170207
  Serious: Yes (Hospitalization, Other)
  Sender: FDA-Public Use
  Company Number: US-PFIZER INC-2016512559

PATIENT
  Age: 64 Year
  Sex: Male
  Weight: 92.99 kg

DRUGS (7)
  1. XANAX [Suspect]
     Active Substance: ALPRAZOLAM
     Indication: ANXIETY
     Dosage: 1 MG, 3X/DAY
     Route: 048
     Dates: start: 1986
  2. XANAX [Suspect]
     Active Substance: ALPRAZOLAM
     Dosage: 0.5 MG, 3X/DAY
     Route: 048
     Dates: start: 1995
  3. OMEPRAZOLE. [Concomitant]
     Active Substance: OMEPRAZOLE
     Indication: ANTACID THERAPY
     Dosage: 40 MG, 1X/DAY
  4. LISINOPRIL. [Concomitant]
     Active Substance: LISINOPRIL
     Indication: BLOOD PRESSURE ABNORMAL
     Dosage: 40 MG, 1X/DAY
  5. HYDROCHLOROTHIAZIDE. [Concomitant]
     Active Substance: HYDROCHLOROTHIAZIDE
     Indication: BLOOD PRESSURE ABNORMAL
     Dosage: 25 MG, 1X/DAY
  6. KLONOPIN [Suspect]
     Active Substance: CLONAZEPAM
     Indication: ANXIETY
     Dosage: 0.5 MG, 3X/DAY
     Route: 048
     Dates: start: 201608
  7. NORVASC [Concomitant]
     Active Substance: AMLODIPINE BESYLATE
     Indication: BLOOD PRESSURE ABNORMAL
     Dosage: 10 MG, 1X/DAY

REACTIONS (8)
  - Cardiac flutter [Not Recovered/Not Resolved]
  - Feeling abnormal [Unknown]
  - Intentional product use issue [Unknown]
  - Cardiac disorder [Unknown]
  - Hypertension [Unknown]
  - Drug dependence [Unknown]
  - Drug withdrawal syndrome [Unknown]
  - Dyspnoea [Unknown]

NARRATIVE: CASE EVENT DATE: 201610
